FAERS Safety Report 5840934-4 (Version None)
Quarter: 2008Q3

REPORT INFORMATION
  Report Type: 
  Country: None (occurrence: None)
  Receive Date: 20080811
  Receipt Date: 20080730
  Transmission Date: 20090109
  Serious: Yes (Other)
  Sender: FDA-Public Use
  Company Number: AU-PFIZER INC-2008064591

PATIENT
  Sex: Male

DRUGS (7)
  1. CHANTIX [Suspect]
  2. STELAZINE [Concomitant]
  3. AMOXICILLIN [Concomitant]
  4. VENTOLIN [Concomitant]
  5. SERETIDE [Concomitant]
  6. NASONEX [Concomitant]
  7. VICKS INH [Concomitant]

REACTIONS (5)
  - DYSGRAPHIA [None]
  - HEADACHE [None]
  - HYPOAESTHESIA [None]
  - MUSCLE SPASMS [None]
  - PARAESTHESIA [None]
